FAERS Safety Report 25888675 (Version 1)
Quarter: 2025Q4

REPORT INFORMATION
  Report Type: Spontaneous
  Country: EU (occurrence: EU)
  Receive Date: 20251007
  Receipt Date: 20251007
  Transmission Date: 20260119
  Serious: Yes (Death, Other)
  Sender: BRISTOL-MYERS SQUIBB COMPANY
  Company Number: EU-ABBVIE-6483776

PATIENT
  Age: 60 Year
  Sex: Male

DRUGS (11)
  1. AZACITIDINE [Suspect]
     Active Substance: AZACITIDINE
     Indication: Acute myeloid leukaemia
     Dosage: CYCLE 1 OF AZACITIDINE/VENETOCLAX
     Dates: start: 20240711, end: 20240718
  2. AZACITIDINE [Suspect]
     Active Substance: AZACITIDINE
     Dosage: CYCLE 2 OF AZACITIDINE/VENETOCLAX
     Dates: start: 20240807, end: 20240814
  3. AZACITIDINE [Suspect]
     Active Substance: AZACITIDINE
     Dosage: CYCLE 3 OF AZACITIDINE/VENETOCLAX
  4. AZACITIDINE [Suspect]
     Active Substance: AZACITIDINE
     Dates: start: 20250203, end: 20250208
  5. VENETOCLAX [Suspect]
     Active Substance: VENETOCLAX
     Indication: Acute myeloid leukaemia
     Dosage: CYCLE 1 OF AZACITIDINE/VENETOCLAX
     Dates: start: 20240711, end: 20240718
  6. VENETOCLAX [Suspect]
     Active Substance: VENETOCLAX
     Dosage: CYCLE 2 OF AZACITIDINE/VENETOCLAX
     Dates: start: 20240807, end: 20240814
  7. VENETOCLAX [Suspect]
     Active Substance: VENETOCLAX
     Dosage: CYCLE 3 OF AZACITIDINE/VENETOCLAX
  8. GILTERITINIB [Suspect]
     Active Substance: GILTERITINIB
     Indication: Product used for unknown indication
  9. GILTERITINIB [Suspect]
     Active Substance: GILTERITINIB
     Dosage: RESTARTED AT REDUCED DOSE
  10. GILTERITINIB [Suspect]
     Active Substance: GILTERITINIB
     Dosage: DAYS 1-5
     Dates: start: 20250203, end: 20250208
  11. CYTARABINE\DAUNORUBICIN [Concomitant]
     Active Substance: CYTARABINE\DAUNORUBICIN
     Indication: Product used for unknown indication
     Dosage: 3+7 REGIMEN

REACTIONS (4)
  - Sepsis [Fatal]
  - Leukaemia [Fatal]
  - Drug ineffective [Unknown]
  - Hepatic enzyme increased [Unknown]

NARRATIVE: CASE EVENT DATE: 20241023
